APPROVED DRUG PRODUCT: MEROPENEM
Active Ingredient: MEROPENEM
Strength: 500MG/VIAL
Dosage Form/Route: INJECTABLE;INJECTION
Application: A205883 | Product #001 | TE Code: AP
Applicant: AMNEAL PHARMACEUTICALS
Approved: Apr 12, 2016 | RLD: No | RS: No | Type: RX